FAERS Safety Report 7396725-9 (Version None)
Quarter: 2011Q2

REPORT INFORMATION
  Report Type: 
  Country: None (occurrence: None)
  Receive Date: 20110406
  Receipt Date: 20110329
  Transmission Date: 20111010
  Serious: Yes (Other)
  Sender: FDA-Public Use
  Company Number: US-SANOFI-AVENTIS-2011SA019861

PATIENT
  Age: 62 Year
  Sex: Male
  Weight: 106.8 kg

DRUGS (5)
  1. FENOFIBRATE [Concomitant]
  2. SYNTHROID [Concomitant]
  3. CRESTOR [Concomitant]
  4. TOPROL-XL [Concomitant]
  5. PLAVIX [Suspect]
     Indication: STENT PLACEMENT
     Route: 048
     Dates: start: 20110329

REACTIONS (1)
  - ANXIETY [None]
